FAERS Safety Report 5615583-3 (Version None)
Quarter: 2008Q1

REPORT INFORMATION
  Report Type: 
  Country: None (occurrence: None)
  Receive Date: 20080206
  Receipt Date: 20080130
  Transmission Date: 20080703
  Serious: Yes (Life-Threatening, Hospitalization)
  Sender: FDA-Public Use
  Company Number: US-JNJFOC-20050104149

PATIENT
  Sex: Male
  Weight: 13 kg

DRUGS (3)
  1. TYLENOL (CAPLET) [Suspect]
  2. TYLENOL (CAPLET) [Suspect]
     Indication: INFLUENZA
     Dosage: 80 MG-NO MORE THAN TWICE DAILY, INTERMITTENTLY FOR 3 TO 4 WKS THEN 2 DOSES DAILY FOR APPROX. 1 WEEK
  3. NYQUIL [Suspect]
     Indication: NASOPHARYNGITIS

REACTIONS (4)
  - ACUTE HEPATIC FAILURE [None]
  - DRUG ADMINISTRATION ERROR [None]
  - DRUG TOXICITY [None]
  - HEPATIC ENCEPHALOPATHY [None]
